FAERS Safety Report 6435072-6 (Version None)
Quarter: 2009Q4

REPORT INFORMATION
  Report Type: 
  Country: None (occurrence: None)
  Receive Date: 20091110
  Receipt Date: 20091026
  Transmission Date: 20100525
  Serious: Yes (Hospitalization)
  Sender: FDA-Public Use
  Company Number: FR-JNJFOC-20091102150

PATIENT
  Age: 75 Year
  Sex: Male

DRUGS (9)
  1. TRAMADOL HCL [Suspect]
     Indication: SCIATICA
     Dosage: TOTAL DOSE: 300 MG PER DAY
     Route: 048
     Dates: start: 20090817, end: 20090903
  2. FLUINDIONE [Interacting]
     Route: 048
  3. FLUINDIONE [Interacting]
     Dosage: ^2 DAYS ON 3^
     Route: 048
  4. FLUINDIONE [Interacting]
     Indication: DRUG USE FOR UNKNOWN INDICATION
     Route: 048
  5. PARACETAMOL [Suspect]
     Route: 048
     Dates: start: 20090817, end: 20090903
  6. PARACETAMOL [Suspect]
     Indication: SCIATICA
     Route: 048
     Dates: start: 20090817, end: 20090903
  7. OLMETEC [Concomitant]
     Dosage: EVERY MORNING
  8. SOTALEX [Concomitant]
  9. LEVOTHYROXINE SODIUM [Concomitant]
     Dosage: EVERY MORNING

REACTIONS (2)
  - DRUG INTERACTION [None]
  - INTERNATIONAL NORMALISED RATIO INCREASED [None]
